FAERS Safety Report 10669060 (Version 3)
Quarter: 2015Q1

REPORT INFORMATION
  Report Type: Spontaneous
  Country: US (occurrence: US)
  Receive Date: 20141222
  Receipt Date: 20150324
  Transmission Date: 20150720
  Serious: Yes (Hospitalization)
  Sender: FDA-Public Use
  Company Number: US-INCYTE CORPORATION-2014IN003902

PATIENT
  Age: 71 Year
  Sex: Female

DRUGS (15)
  1. CENTRUM                            /07499601/ [Concomitant]
  2. JAKAFI [Suspect]
     Active Substance: RUXOLITINIB
     Dosage: 10 MG, BID
     Route: 048
  3. VITAMIN D                          /00107901/ [Concomitant]
     Active Substance: ERGOCALCIFEROL
  4. EXJADE [Concomitant]
     Active Substance: DEFERASIROX
  5. JAKAFI [Suspect]
     Active Substance: RUXOLITINIB
     Dosage: 10 MG, TID
     Route: 048
     Dates: start: 20140527, end: 201412
  6. CELEXA [Concomitant]
     Active Substance: CITALOPRAM HYDROBROMIDE
  7. FISH OIL [Concomitant]
     Active Substance: FISH OIL
  8. BIOTIN [Concomitant]
     Active Substance: BIOTIN
  9. VITAMIN C [Concomitant]
     Active Substance: ASCORBIC ACID
  10. NASONEX [Concomitant]
     Active Substance: MOMETASONE FUROATE
  11. ARANESP [Concomitant]
     Active Substance: DARBEPOETIN ALFA
  12. SINGULAIR [Concomitant]
     Active Substance: MONTELUKAST SODIUM
  13. SYMBICORT [Concomitant]
     Active Substance: BUDESONIDE\FORMOTEROL FUMARATE DIHYDRATE
  14. ACTONEL [Concomitant]
     Active Substance: RISEDRONATE SODIUM
  15. PROTONIX [Concomitant]
     Active Substance: PANTOPRAZOLE SODIUM

REACTIONS (3)
  - Platelet disorder [Unknown]
  - Pubis fracture [Unknown]
  - Fall [Unknown]

NARRATIVE: CASE EVENT DATE: 201412
